FAERS Safety Report 5450539-5 (Version None)
Quarter: 2007Q3

REPORT INFORMATION
  Report Type: 
  Country: None (occurrence: None)
  Receive Date: 20070910
  Receipt Date: 20070829
  Transmission Date: 20080115
  Serious: Yes (Hospitalization)
  Sender: FDA-Public Use
  Company Number: 237985K06USA

PATIENT
  Age: 28 Year
  Sex: Female

DRUGS (6)
  1. REBIF [Suspect]
     Indication: MULTIPLE SCLEROSIS
     Dosage: 44 MCG, 3 IN WEEKS, SUBCUTANEOUS
     Route: 058
     Dates: start: 20061118
  2. IBUPROFEN [Concomitant]
  3. NEURONTIN [Concomitant]
  4. TIZANIDINE HCL [Concomitant]
  5. LEXAPRO [Concomitant]
  6. XANAX [Concomitant]

REACTIONS (6)
  - BACK PAIN [None]
  - CONDITION AGGRAVATED [None]
  - DIPLOPIA [None]
  - FACIAL PAIN [None]
  - HYPOAESTHESIA [None]
  - MULTIPLE SCLEROSIS [None]
